FAERS Safety Report 25403120 (Version 1)
Quarter: 2025Q2

REPORT INFORMATION
  Report Type: Spontaneous
  Country: US (occurrence: US)
  Receive Date: 20250605
  Receipt Date: 20250605
  Transmission Date: 20250716
  Serious: Yes (Hospitalization, Other)
  Sender: SANOFI AVENTIS
  Company Number: US-SA-2025SA158091

PATIENT
  Age: 67 Year
  Sex: Male

DRUGS (24)
  1. REZUROCK [Suspect]
     Active Substance: BELUMOSUDIL
     Dosage: 200 MG, BID
     Route: 048
  2. ACETAMINOPHEN [Concomitant]
     Active Substance: ACETAMINOPHEN
  3. ACYCLOVIR [Concomitant]
     Active Substance: ACYCLOVIR
  4. ALLOPURINOL [Concomitant]
     Active Substance: ALLOPURINOL
  5. BASAGLAR [Concomitant]
     Active Substance: INSULIN GLARGINE
  6. COQ10 [CONJUGATED LINOLEIC ACID;LINUM USITATISSIMUM SEED OIL;UBIDECARE [Concomitant]
  7. DOXYCYCLINE HYCLATE [Concomitant]
     Active Substance: DOXYCYCLINE HYCLATE
  8. ELIQUIS [Concomitant]
     Active Substance: APIXABAN
  9. FENOFIBRATE [Concomitant]
     Active Substance: FENOFIBRATE
  10. FUROSEMIDE [Concomitant]
     Active Substance: FUROSEMIDE
  11. GLUCOSAMINE MSM COMPLEX [Concomitant]
  12. HUMALOG [Concomitant]
     Active Substance: INSULIN LISPRO
  13. LASIX [Concomitant]
     Active Substance: FUROSEMIDE
  14. METOPROLOL TARTRATE [Concomitant]
     Active Substance: METOPROLOL TARTRATE
  15. VITAMINS [Concomitant]
     Active Substance: VITAMINS
  16. NORVASC [Concomitant]
     Active Substance: AMLODIPINE BESYLATE
  17. OMEGA-3-ACID ETHYL ESTER [Concomitant]
     Active Substance: OMEGA-3-ACID ETHYL ESTERS
  18. OMEPRAZOLE [Concomitant]
     Active Substance: OMEPRAZOLE
  19. PENTAM [Concomitant]
     Active Substance: PENTAMIDINE ISETHIONATE
  20. POTASSIUM CHLORIDE [Concomitant]
     Active Substance: POTASSIUM CHLORIDE
  21. PREDNISONE [Concomitant]
     Active Substance: PREDNISONE
  22. ROSUVASTATIN CALCIUM [Concomitant]
     Active Substance: ROSUVASTATIN CALCIUM
  23. TRICOR [Concomitant]
     Active Substance: FENOFIBRATE
  24. ROBITUSSIN COUGH AND CHEST CONGESTION DM [Concomitant]
     Active Substance: DEXTROMETHORPHAN HYDROBROMIDE\GUAIFENESIN

REACTIONS (1)
  - Sepsis [Recovered/Resolved]
